FAERS Safety Report 13726821 (Version 2)
Quarter: 2017Q3

REPORT INFORMATION
  Report Type: Spontaneous
  Country: US (occurrence: US)
  Receive Date: 20170706
  Receipt Date: 20170802
  Transmission Date: 20171127
  Serious: Yes (Other)
  Sender: FDA-Public Use
  Company Number: US-PFIZER INC-2017292646

PATIENT
  Age: 20 Year
  Sex: Male

DRUGS (5)
  1. NEURONTIN [Suspect]
     Active Substance: GABAPENTIN
     Dosage: 800 MG, 3X/DAY
     Dates: end: 20170715
  2. VICODIN [Concomitant]
     Active Substance: ACETAMINOPHEN\HYDROCODONE BITARTRATE
     Dosage: UNK UNK, 3X/DAY (HYDROCODONE BITARTRATE: 7.5MG, PARACETAMOL 325MG) (2 OR 1)
  3. TRAMADOL. [Concomitant]
     Active Substance: TRAMADOL
     Dosage: UNK (UPTO 6 PER DAY, ONLY 1-2 USED PER DAY AT MOST)
     Dates: end: 201706
  4. DULOXETINE. [Concomitant]
     Active Substance: DULOXETINE
     Dosage: 60 MG, 1X/DAY
  5. NEURONTIN [Suspect]
     Active Substance: GABAPENTIN
     Indication: PAIN
     Dosage: 300 MG, UNK

REACTIONS (6)
  - Product use in unapproved indication [Recovered/Resolved]
  - Intrusive thoughts [Recovered/Resolved]
  - Amnesia [Not Recovered/Not Resolved]
  - Suicidal ideation [Recovered/Resolved]
  - Neuralgia [Not Recovered/Not Resolved]
  - Condition aggravated [Unknown]
